FAERS Safety Report 17168678 (Version 1)
Quarter: 2019Q4

REPORT INFORMATION
  Report Type: Spontaneous
  Country: US (occurrence: US)
  Receive Date: 20191217
  Receipt Date: 20191217
  Transmission Date: 20200122
  Serious: Yes (Disabling, Other)
  Sender: FDA-Public Use
  Company Number: None

PATIENT
  Age: 49 Year
  Sex: Female
  Weight: 93.6 kg

DRUGS (13)
  1. VYVANSE 10MG QD IN AFTERNOON [Concomitant]
  2. LEVOFLOXACIN 500 MG (ML 63 IMPRINT ON TABLET) [Suspect]
     Active Substance: LEVOFLOXACIN
     Indication: PNEUMONIA
     Dosage: ?          QUANTITY:1 TABLET(S);?
     Route: 048
     Dates: start: 20191113, end: 20191115
  3. TRAZODONE 100 MG HS PRN [Concomitant]
  4. BENTYL 20MG PRN [Concomitant]
  5. GABIPENTIN 300MG PRN [Concomitant]
  6. VYVANSE 50 MG QD IN AM [Concomitant]
  7. VITAMIN B COMPLEX [Concomitant]
     Active Substance: CYANOCOBALAMIN\DEXPANTHENOL\NIACINAMIDE\PYRIDOXINE HYDROCHLORIDE\RIBOFLAVIN 5^-PHOSPHATE SODIUM\THIAMINE HYDROCHLORIDE\VITAMIN B COMPLEX
  8. BENADRYL 25-50MG [Concomitant]
  9. XARELTO [Concomitant]
     Active Substance: RIVAROXABAN
  10. SUMATRIPTAN 100MG [Concomitant]
     Active Substance: SUMATRIPTAN
  11. TRAMADOL 50MG [Concomitant]
     Active Substance: TRAMADOL
  12. ARMOUR THYROID 240MG [Concomitant]
  13. MULTIVITAMIN [Concomitant]
     Active Substance: VITAMINS

REACTIONS (6)
  - Pulmonary embolism [None]
  - Meniscus injury [None]
  - Deep vein thrombosis [None]
  - Tendon injury [None]
  - Tendonitis [None]
  - Product use complaint [None]

NARRATIVE: CASE EVENT DATE: 20191115
